FAERS Safety Report 18789070 (Version 1)
Quarter: 2021Q1

REPORT INFORMATION
  Report Type: Spontaneous
  Country: CN (occurrence: CN)
  Receive Date: 20210126
  Receipt Date: 20210126
  Transmission Date: 20210419
  Serious: Yes (Other)
  Sender: FDA-Public Use
  Company Number: CN-PFIZER INC-2021051295

PATIENT
  Sex: Male

DRUGS (1)
  1. CELEBREX [Suspect]
     Active Substance: CELECOXIB
     Indication: OSTEOARTHRITIS
     Dosage: UNK
     Route: 048
     Dates: start: 202101

REACTIONS (3)
  - Radial pulse abnormal [Unknown]
  - Dyspnoea [Unknown]
  - Pulse abnormal [Unknown]

NARRATIVE: CASE EVENT DATE: 202101
